FAERS Safety Report 9657802 (Version 1)
Quarter: 2013Q4

REPORT INFORMATION
  Report Type: Spontaneous
  Country: US (occurrence: US)
  Receive Date: 20131030
  Receipt Date: 20131030
  Transmission Date: 20140711
  Serious: Yes (Hospitalization)
  Sender: FDA-Public Use
  Company Number: PHHY2013US120076

PATIENT
  Age: 67 Year
  Sex: Male

DRUGS (6)
  1. WARFARIN [Suspect]
  2. ACETYLSALICYLIC ACID [Suspect]
     Indication: CARDIOVASCULAR EVENT PROPHYLAXIS
     Dosage: 81 MG, DAILY
  3. DABIGATRAN [Suspect]
     Dosage: 150 MG, BID
  4. SOTALOL [Concomitant]
  5. OMEPRAZOLE [Concomitant]
  6. LISINOPRIL [Concomitant]

REACTIONS (4)
  - Renal failure acute [Recovered/Resolved]
  - Renal tubular necrosis [Recovered/Resolved]
  - IgA nephropathy [Recovered/Resolved]
  - Haematuria [Recovered/Resolved]
